FAERS Safety Report 16729321 (Version 3)
Quarter: 2019Q4

REPORT INFORMATION
  Report Type: Report from Study
  Country: SK (occurrence: SK)
  Receive Date: 20190822
  Receipt Date: 20191120
  Transmission Date: 20200122
  Serious: Yes (Death, Hospitalization)
  Sender: FDA-Public Use
  Company Number: SK-CLOVIS ONCOLOGY-CLO-2019-001642

PATIENT

DRUGS (17)
  1. THEOPHYLLINE [Concomitant]
     Active Substance: THEOPHYLLINE ANHYDROUS
     Indication: CHRONIC OBSTRUCTIVE PULMONARY DISEASE
     Dosage: UNK
     Dates: start: 201801
  2. HYDROCHLOROTHIAZIDE. [Concomitant]
     Active Substance: HYDROCHLOROTHIAZIDE
     Indication: HYPERTENSION
     Dosage: UNK
     Dates: start: 201801
  3. ROSUVASTATIN. [Suspect]
     Active Substance: ROSUVASTATIN
     Dosage: 20 MG, ONCE
     Route: 048
     Dates: start: 20190527, end: 20190527
  4. ASCORBIC ACID. [Concomitant]
     Active Substance: ASCORBIC ACID
     Indication: ANAEMIA
     Dosage: UNK
     Dates: start: 201801
  5. BISOPROLOL FUMERATE [Concomitant]
     Active Substance: BISOPROLOL FUMARATE
     Indication: HYPERTENSION
     Dosage: UNK
     Dates: start: 201801
  6. URAPIDIL [Concomitant]
     Active Substance: URAPIDIL
     Indication: HYPERTENSION
     Dosage: UNK
     Dates: start: 201801
  7. CANDESARTAN                        /01349502/ [Concomitant]
     Active Substance: CANDESARTAN
     Indication: HYPERTENSION
     Dosage: UNK
     Dates: start: 201801
  8. FUROSEMIDE. [Concomitant]
     Active Substance: FUROSEMIDE
     Indication: ASCITES
     Dosage: UNK
     Dates: start: 201907
  9. AMLODIPINE [Concomitant]
     Active Substance: AMLODIPINE BESYLATE
     Indication: HYPERTENSION
     Dosage: UNK
     Dates: start: 201801
  10. RUCAPARIB [Suspect]
     Active Substance: RUCAPARIB
     Indication: ADENOCARCINOMA OF COLON
     Dosage: 600 MG, BID
     Route: 048
     Dates: start: 20190513
  11. METFORMIN HCL [Concomitant]
     Active Substance: METFORMIN HYDROCHLORIDE
     Indication: TYPE 2 DIABETES MELLITUS
     Dosage: UNK
     Dates: start: 201801
  12. PYRIDOXINE HYDROCHLORIDE. [Concomitant]
     Active Substance: PYRIDOXINE HYDROCHLORIDE
     Indication: POLYNEUROPATHY
     Dosage: UNK
     Dates: start: 201801
  13. ATORVASTATIN [Concomitant]
     Active Substance: ATORVASTATIN
     Indication: HYPERCHOLESTEROLAEMIA
     Dosage: UNK
     Dates: start: 201801
  14. BETA GLUCAN [Concomitant]
     Active Substance: BETA GLUCAN
     Indication: SUPPLEMENTATION THERAPY
     Dosage: UNK
     Dates: start: 201903
  15. RUCAPARIB [Suspect]
     Active Substance: RUCAPARIB
     Dosage: 600 MG, BID
     Route: 048
     Dates: end: 20190812
  16. ROSUVASTATIN. [Suspect]
     Active Substance: ROSUVASTATIN
     Indication: ADENOCARCINOMA OF COLON
     Dosage: 20 MG, ONCE
     Route: 048
     Dates: start: 20190509, end: 20190509
  17. OMEPRAZOLE. [Concomitant]
     Active Substance: OMEPRAZOLE
     Indication: PORTAL HYPERTENSIVE GASTROPATHY
     Dosage: UNK
     Dates: start: 201801

REACTIONS (1)
  - Pancytopenia [Not Recovered/Not Resolved]

NARRATIVE: CASE EVENT DATE: 20190812
